FAERS Safety Report 7777646-6 (Version None)
Quarter: 2011Q3

REPORT INFORMATION
  Report Type: 
  Country: None (occurrence: None)
  Receive Date: 20110926
  Receipt Date: 20110916
  Transmission Date: 20111222
  Serious: Yes (Hospitalization, Other)
  Sender: FDA-Public Use
  Company Number: US-BAYER-2011-012986

PATIENT
  Age: 26 Year
  Sex: Female
  Weight: 49.887 kg

DRUGS (9)
  1. PHENERGAN HCL [Concomitant]
     Dosage: UNK
     Dates: start: 20080414
  2. PROMETHAZINE [Concomitant]
     Dosage: 25 MG, UNK
     Dates: start: 20080411
  3. YAZ [Suspect]
     Indication: PREMENSTRUAL SYNDROME
     Dosage: UNK
     Dates: start: 20080101, end: 20100101
  4. LORTAB [Concomitant]
     Indication: PAIN
     Dosage: UNK
     Dates: start: 20080414
  5. HYDROCODONE BITARTRATE AND ACETAMINOPHEN [Concomitant]
     Dosage: UNK
     Dates: start: 20080411
  6. YAZ [Suspect]
     Indication: CONTRACEPTION
     Dosage: UNK
     Dates: start: 20060901, end: 20070101
  7. MOTRIN [Concomitant]
     Dosage: UNK UNK, PRN
  8. TAMIFLU [Concomitant]
     Dosage: 75 MG, UNK
     Dates: start: 20080310
  9. HYOSCYAMINE [Concomitant]
     Dosage: 0.125 MG, UNK
     Dates: start: 20080414

REACTIONS (6)
  - EMOTIONAL DISTRESS [None]
  - CHOLELITHIASIS [None]
  - PAIN [None]
  - INJURY [None]
  - ANXIETY [None]
  - GENERAL PHYSICAL HEALTH DETERIORATION [None]
